FAERS Safety Report 6229742-2 (Version None)
Quarter: 2009Q2

REPORT INFORMATION
  Report Type: 
  Country: None (occurrence: None)
  Receive Date: 20090615
  Receipt Date: 20090603
  Transmission Date: 20091009
  Serious: Yes (Other)
  Sender: FDA-Public Use
  Company Number: PHEH2009US05685

PATIENT
  Sex: Male

DRUGS (1)
  1. FOCALIN XR [Suspect]
     Dosage: 5 MG, QD
     Route: 048
     Dates: start: 20090319

REACTIONS (1)
  - FEELING ABNORMAL [None]
